FAERS Safety Report 12746573 (Version 2)
Quarter: 2016Q3

REPORT INFORMATION
  Report Type: Report from Study
  Country: US (occurrence: US)
  Receive Date: 20160915
  Receipt Date: 20160920
  Transmission Date: 20161109
  Serious: Yes (Death, Hospitalization)
  Sender: FDA-Public Use
  Company Number: US-ACTELION-A-NJ2016-136434

PATIENT
  Age: 8 Month
  Sex: Female

DRUGS (11)
  1. TRACLEER [Suspect]
     Active Substance: BOSENTAN
     Dosage: 15.625 MG, BID
     Route: 048
     Dates: start: 20160311, end: 20160511
  2. ZITHROMAX [Concomitant]
     Active Substance: AZITHROMYCIN DIHYDRATE
     Dosage: 40 MG, UNK
     Dates: start: 20160331, end: 20160516
  3. LASIX [Concomitant]
     Active Substance: FUROSEMIDE
     Dosage: 5 MG, Q6HRS
     Dates: start: 20160331, end: 20160516
  4. REGLAN [Concomitant]
     Active Substance: METOCLOPRAMIDE HYDROCHLORIDE
     Dosage: UNK
     Dates: start: 20160331, end: 20160516
  5. TRACLEER [Suspect]
     Active Substance: BOSENTAN
     Indication: PULMONARY ARTERIAL HYPERTENSION
     Dosage: 1 MG/KG, BID
     Route: 048
     Dates: start: 20160311
  6. PRILOSEC [Concomitant]
     Active Substance: OMEPRAZOLE MAGNESIUM
     Dosage: 5 MG, Q6HRS
     Dates: start: 20160331, end: 20160516
  7. DIGOXIN. [Concomitant]
     Active Substance: DIGOXIN
     Dosage: 8 MG, BID
     Dates: start: 20160331, end: 20160516
  8. ASPIRIN. [Concomitant]
     Active Substance: ASPIRIN
     Dosage: 20.25 MG, QD
     Route: 048
     Dates: start: 20160331, end: 20160516
  9. TRACLEER [Suspect]
     Active Substance: BOSENTAN
     Dosage: 10.625 MG, QD
     Route: 048
     Dates: start: 20160311, end: 20160319
  10. LOVENOX [Concomitant]
     Active Substance: ENOXAPARIN SODIUM
     Dosage: 7 MG, Q12HRS
     Route: 058
     Dates: start: 20160331, end: 20160516
  11. DIURIL [Concomitant]
     Active Substance: CHLOROTHIAZIDE
     Dosage: 45 MG, Q6HRS
     Dates: start: 20160331, end: 20160516

REACTIONS (5)
  - Right ventricular systolic pressure increased [Not Recovered/Not Resolved]
  - Hypotension [Fatal]
  - Cardiac arrest [Fatal]
  - Bradycardia [Fatal]
  - Therapy non-responder [Unknown]
